FAERS Safety Report 15121415 (Version 3)
Quarter: 2018Q4

REPORT INFORMATION
  Report Type: Spontaneous
  Country: FR (occurrence: FR)
  Receive Date: 20180709
  Receipt Date: 20181119
  Transmission Date: 20190204
  Serious: Yes (Other)
  Sender: FDA-Public Use
  Company Number: FR-AUROBINDO-AUR-APL-2018-035326

PATIENT
  Age: 59 Year
  Sex: Female

DRUGS (6)
  1. MYCOPHENOLATE MOFETIL. [Suspect]
     Active Substance: MYCOPHENOLATE MOFETIL
     Indication: RENAL TRANSPLANT
     Dosage: UNK
     Route: 065
     Dates: start: 201211
  2. MYCOPHENOLATE MOFETIL. [Suspect]
     Active Substance: MYCOPHENOLATE MOFETIL
     Indication: IMMUNOSUPPRESSION
  3. PREDNISONE. [Suspect]
     Active Substance: PREDNISONE
     Indication: IMMUNOSUPPRESSANT DRUG THERAPY
  4. PREDNISONE. [Suspect]
     Active Substance: PREDNISONE
     Indication: RENAL TRANSPLANT
     Dosage: 4 MILLIGRAM, ONCE A DAY
     Route: 065
     Dates: start: 201211
  5. TACROLIMUS. [Suspect]
     Active Substance: TACROLIMUS
     Indication: IMMUNOSUPPRESSION
  6. TACROLIMUS. [Suspect]
     Active Substance: TACROLIMUS
     Indication: RENAL TRANSPLANT
     Dosage: UNK
     Route: 065
     Dates: start: 201211

REACTIONS (4)
  - Klebsiella infection [Unknown]
  - Phaeohyphomycosis [Recovered/Resolved]
  - Enterobacter infection [Unknown]
  - Swelling [Recovering/Resolving]

NARRATIVE: CASE EVENT DATE: 201406
